FAERS Safety Report 17078554 (Version 1)
Quarter: 2019Q4

REPORT INFORMATION
  Report Type: Spontaneous
  Country: SE (occurrence: SE)
  Receive Date: 20191126
  Receipt Date: 20191126
  Transmission Date: 20200122
  Serious: Yes (Hospitalization)
  Sender: FDA-Public Use
  Company Number: SE-CANTON LABORATORIES, LLC-2077239

PATIENT
  Age: 22 Year
  Sex: Female

DRUGS (8)
  1. ATARAX [Suspect]
     Active Substance: HYDROXYZINE HYDROCHLORIDE
     Route: 048
     Dates: start: 20180508, end: 20180508
  2. VALDOXAN [Suspect]
     Active Substance: AGOMELATINE
     Route: 048
     Dates: start: 20180508, end: 20180508
  3. NAPROSYN [Suspect]
     Active Substance: NAPROXEN
     Indication: INTENTIONAL OVERDOSE
     Route: 048
     Dates: start: 20180508, end: 20180508
  4. ALVEDON [Suspect]
     Active Substance: ACETAMINOPHEN
     Route: 065
     Dates: start: 20180508, end: 20180508
  5. OXASCAND [Suspect]
     Active Substance: OXAZEPAM
     Route: 048
     Dates: start: 20180508, end: 20180508
  6. LERGIGAN (PROMETHAZINE HYDROCHLORIDE) [Suspect]
     Active Substance: PROMETHAZINE HYDROCHLORIDE
     Route: 048
     Dates: start: 20180508, end: 20180508
  7. BUPROPION. [Suspect]
     Active Substance: BUPROPION
     Route: 048
     Dates: start: 20180508, end: 20180508
  8. MIRTAZAPINE. [Suspect]
     Active Substance: MIRTAZAPINE
     Route: 048
     Dates: start: 20180508, end: 20180508

REACTIONS (3)
  - Depressed level of consciousness [Unknown]
  - Intentional self-injury [Unknown]
  - Intentional overdose [Unknown]

NARRATIVE: CASE EVENT DATE: 20180508
